FAERS Safety Report 6872799-6 (Version None)
Quarter: 2010Q3

REPORT INFORMATION
  Report Type: 
  Country: None (occurrence: None)
  Receive Date: 20100723
  Receipt Date: 20081218
  Transmission Date: 20110219
  Serious: No
  Sender: FDA-Public Use
  Company Number: US-PFIZER INC-2008086462

PATIENT
  Sex: Female
  Weight: 92.99 kg

DRUGS (15)
  1. CHANTIX [Suspect]
     Indication: SMOKING CESSATION THERAPY
     Dosage: 1 MG, 2X/DAY
     Dates: start: 20081001
  2. OCTREOTIDE ACETATE [Concomitant]
  3. LASIX [Concomitant]
  4. PAXIL [Concomitant]
  5. POTASSIUM [Concomitant]
  6. ALL OTHER THERAPEUTIC PRODUCTS [Concomitant]
  7. RANITIDINE [Concomitant]
  8. ASPIRIN [Concomitant]
  9. ZANTAC [Concomitant]
  10. VISTARIL [Concomitant]
  11. BENADRYL [Concomitant]
  12. ATENOLOL [Concomitant]
  13. DARVON [Concomitant]
  14. IBUPROFEN [Concomitant]
  15. MONTELUKAST SODIUM [Concomitant]

REACTIONS (6)
  - ABNORMAL DREAMS [None]
  - DIZZINESS [None]
  - FATIGUE [None]
  - FEELING ABNORMAL [None]
  - FLATULENCE [None]
  - HYPERHIDROSIS [None]
